FAERS Safety Report 15013215 (Version 1)
Quarter: 2018Q2

REPORT INFORMATION
  Report Type: Spontaneous
  Country: US (occurrence: US)
  Receive Date: 20180614
  Receipt Date: 20180614
  Transmission Date: 20180711
  Serious: Yes (Hospitalization)
  Sender: FDA-Public Use
  Company Number: US-MYLANLABS-2018M1039393

PATIENT
  Age: 72 Year
  Sex: Male

DRUGS (1)
  1. ATORVASTATIN [Suspect]
     Active Substance: ATORVASTATIN
     Indication: PRODUCT USED FOR UNKNOWN INDICATION
     Route: 065

REACTIONS (5)
  - Loss of personal independence in daily activities [Recovered/Resolved]
  - Immune-mediated necrotising myopathy [Recovered/Resolved]
  - Dysphagia [Recovered/Resolved]
  - Blood creatine phosphokinase increased [Recovered/Resolved]
  - Muscle atrophy [Recovered/Resolved]
